FAERS Safety Report 8538359-6 (Version None)
Quarter: 2012Q3

REPORT INFORMATION
  Report Type: 
  Country: None (occurrence: None)
  Receive Date: 20120726
  Receipt Date: 20120722
  Transmission Date: 20120928
  Serious: No
  Sender: FDA-Public Use
  Company Number: US-PFIZER INC-2012176706

PATIENT
  Sex: Male
  Weight: 99.773 kg

DRUGS (2)
  1. ADVIL [Suspect]
     Indication: INFLAMMATION
     Dosage: UNK, 3XDAY WITH MEAL
     Route: 048
     Dates: start: 20120719, end: 20120701
  2. ADVIL [Suspect]
     Indication: PAIN IN EXTREMITY

REACTIONS (4)
  - DYSURIA [None]
  - DYSPHAGIA [None]
  - SENSATION OF FOREIGN BODY [None]
  - PRODUCT SIZE ISSUE [None]
